FAERS Safety Report 17516592 (Version 2)
Quarter: 2022Q4

REPORT INFORMATION
  Report Type: Report from Study
  Country: CA (occurrence: CA)
  Receive Date: 20200309
  Receipt Date: 20221107
  Transmission Date: 20230112
  Serious: Yes (Other)
  Sender: FDA-Public Use
  Company Number: CA-JNJFOC-20200236591

PATIENT
  Age: 82 Year
  Sex: Male

DRUGS (1)
  1. ERLEADA [Suspect]
     Active Substance: APALUTAMIDE
     Indication: Hormone-refractory prostate cancer
     Dosage: STRENGTH = 60 MG
     Route: 048
     Dates: start: 20200630, end: 20221021

REACTIONS (1)
  - Neuropathy peripheral [Unknown]
